FAERS Safety Report 21351334 (Version 1)
Quarter: 2022Q3

REPORT INFORMATION
  Report Type: Spontaneous
  Country: US (occurrence: US)
  Receive Date: 20220919
  Receipt Date: 20220919
  Transmission Date: 20221026
  Serious: No
  Sender: FDA-Public Use
  Company Number: US-SA-SAC20220914000089

PATIENT
  Sex: Male
  Weight: 98.413 kg

DRUGS (2)
  1. DUPIXENT [Suspect]
     Active Substance: DUPILUMAB
     Indication: Dermatitis atopic
     Dosage: 600 MG, 1X
     Route: 058
     Dates: start: 20220907, end: 20220907
  2. DUPIXENT [Suspect]
     Active Substance: DUPILUMAB
     Dosage: 300 MG EVERY 2 WEEKS
     Route: 058

REACTIONS (10)
  - Dermatitis atopic [Unknown]
  - Pruritus [Unknown]
  - Sleep disorder [Unknown]
  - Crying [Unknown]
  - Skin weeping [Unknown]
  - Blister [Unknown]
  - Skin fissures [Unknown]
  - Skin exfoliation [Unknown]
  - Condition aggravated [Unknown]
  - Dry skin [Unknown]
